FAERS Safety Report 9377388 (Version 1)
Quarter: 2013Q3

REPORT INFORMATION
  Report Type: Spontaneous
  Country: IE (occurrence: IE)
  Receive Date: 20130701
  Receipt Date: 20130701
  Transmission Date: 20140515
  Serious: Yes (Other)
  Sender: FDA-Public Use
  Company Number: IE-009507513-1306IRL011859

PATIENT
  Age: 37 Year
  Sex: Female

DRUGS (1)
  1. ZOCOR [Suspect]
     Dosage: UNK
     Route: 048
     Dates: start: 20120117, end: 201202

REACTIONS (2)
  - Abortion spontaneous [Unknown]
  - Exposure during pregnancy [Recovered/Resolved]
